FAERS Safety Report 8495050-2 (Version None)
Quarter: 2012Q2

REPORT INFORMATION
  Report Type: 
  Country: None (occurrence: None)
  Receive Date: 20120627
  Receipt Date: 20120618
  Transmission Date: 20120825
  Serious: Yes (Hospitalization, Other)
  Sender: FDA-Public Use
  Company Number: 2012SP033701

PATIENT
  Sex: Male

DRUGS (3)
  1. RIBAVIRIN [Suspect]
     Indication: HEPATITIS C
     Dates: start: 20120309
  2. VICTRELIS [Suspect]
     Indication: HEPATITIS C
     Dates: start: 20120413
  3. PEG-INTRON [Suspect]
     Indication: HEPATITIS C
     Dates: start: 20120309

REACTIONS (5)
  - PULMONARY THROMBOSIS [None]
  - HAEMORRHOID OPERATION [None]
  - PAIN [None]
  - DECREASED APPETITE [None]
  - PNEUMONIA [None]
